FAERS Safety Report 12527683 (Version 1)
Quarter: 2016Q3

REPORT INFORMATION
  Report Type: Spontaneous
  Country: US (occurrence: US)
  Receive Date: 20160705
  Receipt Date: 20160705
  Transmission Date: 20161109
  Serious: No
  Sender: FDA-Public Use
  Company Number: US-BAYER-2016-130351

PATIENT
  Age: 22 Year
  Sex: Male
  Weight: 108.84 kg

DRUGS (1)
  1. ALEVE [Suspect]
     Active Substance: NAPROXEN SODIUM
     Indication: PRODUCT USED FOR UNKNOWN INDICATION
     Dosage: 9 TO 12 TABLETS OF THESE A DAY
     Route: 048
     Dates: start: 201606

REACTIONS (1)
  - Product use issue [None]

NARRATIVE: CASE EVENT DATE: 201606
